FAERS Safety Report 6831403-3 (Version None)
Quarter: 2010Q3

REPORT INFORMATION
  Report Type: 
  Country: None (occurrence: None)
  Receive Date: 20100707
  Receipt Date: 20100621
  Transmission Date: 20110219
  Serious: Yes (Disabling, Other)
  Sender: FDA-Public Use
  Company Number: 014631

PATIENT
  Age: 43 Year
  Sex: Female
  Weight: 45 kg

DRUGS (2)
  1. KEPPRA [Suspect]
     Indication: CONVULSION
     Dosage: (500 MG BID ORAL)
     Route: 048
     Dates: start: 20100401
  2. KLONOPIN [Concomitant]

REACTIONS (10)
  - BALANCE DISORDER [None]
  - CRYING [None]
  - DEPRESSION [None]
  - DIZZINESS [None]
  - DYSPNOEA [None]
  - GAIT DISTURBANCE [None]
  - IRRITABILITY [None]
  - LOGORRHOEA [None]
  - SOMNOLENCE [None]
  - WEIGHT DECREASED [None]
